FAERS Safety Report 25046051 (Version 4)
Quarter: 2025Q3

REPORT INFORMATION
  Report Type: Report from Study
  Country: CA (occurrence: CA)
  Receive Date: 20250306
  Receipt Date: 20250922
  Transmission Date: 20251021
  Serious: Yes (Hospitalization)
  Sender: TAKEDA
  Company Number: CA-TAKEDA-2025TUS020536

PATIENT
  Sex: Male

DRUGS (12)
  1. VEDOLIZUMAB [Suspect]
     Active Substance: VEDOLIZUMAB
     Indication: Crohn^s disease
  2. VEDOLIZUMAB [Suspect]
     Active Substance: VEDOLIZUMAB
  3. VEDOLIZUMAB [Suspect]
     Active Substance: VEDOLIZUMAB
  4. IRON [Concomitant]
     Active Substance: IRON
     Dosage: UNK UNK, QD
  5. FLUTICASONE [Concomitant]
     Active Substance: FLUTICASONE
     Route: 061
  6. AMITRIPTYLINE [Concomitant]
     Active Substance: AMITRIPTYLINE
  7. GLICLAZIDE [Concomitant]
     Active Substance: GLICLAZIDE
  8. MOMETASONE [Concomitant]
     Active Substance: MOMETASONE
  9. PERINDOPRIL [Concomitant]
     Active Substance: PERINDOPRIL
  10. ROSUVASTATIN [Concomitant]
     Active Substance: ROSUVASTATIN
  11. LOPERAMIDE [Concomitant]
     Active Substance: LOPERAMIDE
  12. CETIRIZINE [Concomitant]
     Active Substance: CETIRIZINE HYDROCHLORIDE

REACTIONS (3)
  - Stoma site haemorrhage [Recovering/Resolving]
  - Haemoglobin decreased [Unknown]
  - Dizziness [Unknown]
